FAERS Safety Report 25578525 (Version 1)
Quarter: 2025Q3

REPORT INFORMATION
  Report Type: Spontaneous
  Country: US (occurrence: None)
  Receive Date: 20250717
  Receipt Date: 20250717
  Transmission Date: 20251021
  Serious: Yes (Other)
  Sender: FDA-CTU
  Company Number: None

PATIENT
  Age: 17 Year
  Sex: Male
  Weight: 57.2 kg

DRUGS (1)
  1. KYMRIAH [Suspect]
     Active Substance: TISAGENLECLEUCEL
     Indication: B-cell type acute leukaemia
     Route: 042
     Dates: start: 20250429, end: 20250429

REACTIONS (8)
  - Endophthalmitis [None]
  - Vision blurred [None]
  - Vitreous floaters [None]
  - Photophobia [None]
  - Eye disorder [None]
  - Optic disc disorder [None]
  - Laboratory test abnormal [None]
  - Optic neuropathy [None]

NARRATIVE: CASE EVENT DATE: 20250502
